FAERS Safety Report 24761949 (Version 1)
Quarter: 2024Q4

REPORT INFORMATION
  Report Type: Spontaneous
  Country: SG (occurrence: SG)
  Receive Date: 20241221
  Receipt Date: 20241221
  Transmission Date: 20250114
  Serious: Yes (Other)
  Sender: AMNEAL
  Company Number: SG-AMNEAL PHARMACEUTICALS-2024-AMRX-04578

PATIENT
  Age: 33 Year
  Sex: Female
  Weight: 93 kg

DRUGS (3)
  1. MORPHINE SULFATE [Suspect]
     Active Substance: MORPHINE SULFATE
     Indication: Spinal anaesthesia
     Dosage: 0.1MG (IN A TOTAL OF 2.8ML)
     Route: 037
  2. BUPIVACAINE [Suspect]
     Active Substance: BUPIVACAINE
     Indication: Spinal anaesthesia
     Dosage: 2.4 ML OF 0.5% HEAVY BUPIVACAINE
     Route: 037
  3. FENTANYL [Suspect]
     Active Substance: FENTANYL
     Indication: Spinal anaesthesia
     Dosage: 15MCG
     Route: 037

REACTIONS (1)
  - Loss of consciousness [Recovered/Resolved]
